FAERS Safety Report 8297692-6 (Version None)
Quarter: 2012Q2

REPORT INFORMATION
  Report Type: 
  Country: None (occurrence: None)
  Receive Date: 20120417
  Receipt Date: 20120404
  Transmission Date: 20120825
  Serious: Yes (Death, Other)
  Sender: FDA-Public Use
  Company Number: WAES 1202USA01116

PATIENT
  Age: 79 Year
  Sex: Female

DRUGS (15)
  1. VYTORIN [Suspect]
     Indication: ACUTE CORONARY SYNDROME
     Dosage: 10-40 MG/DAILY, PO
     Route: 048
     Dates: start: 20081019, end: 20120125
  2. PLACEBO [Suspect]
     Indication: ACUTE CORONARY SYNDROME
     Dosage: PO
     Route: 048
     Dates: start: 20061019, end: 20120125
  3. NORVASC [Concomitant]
  4. ASPIRIN [Concomitant]
  5. NITROGLYCERIN [Concomitant]
  6. MAGNESIUM [Concomitant]
  7. TORSEMIDE [Concomitant]
  8. ZOLPIDEM TARTRATE [Concomitant]
  9. INSULIN [Concomitant]
  10. IRBESARTAN [Concomitant]
  11. PLACEBO [Suspect]
     Indication: ACUTE CORONARY SYNDROME
     Dosage: PO
     Route: 048
     Dates: start: 20061019, end: 20120125
  12. PAROXETINE [Concomitant]
  13. HYDROCHLOROTHIAZIDE [Concomitant]
  14. METFORMIN HCL [Concomitant]
  15. MOXONIDINE [Concomitant]

REACTIONS (1)
  - LUNG ADENOCARCINOMA [None]
